FAERS Safety Report 22090837 (Version 1)
Quarter: 2023Q1

REPORT INFORMATION
  Report Type: Report from Study
  Country: US (occurrence: US)
  Receive Date: 20230313
  Receipt Date: 20230313
  Transmission Date: 20230417
  Serious: Yes (Hospitalization)
  Sender: FDA-Public Use
  Company Number: US-ABBVIE-4338892

PATIENT
  Age: 67 Year

DRUGS (2)
  1. HUMIRA [Suspect]
     Active Substance: ADALIMUMAB
     Indication: Psoriasis
     Dosage: CITRATE FREE
     Route: 058
  2. HUMIRA [Suspect]
     Active Substance: ADALIMUMAB
     Route: 058
     Dates: start: 20230308

REACTIONS (5)
  - Renal disorder [Unknown]
  - COVID-19 [Unknown]
  - Gastric infection [Unknown]
  - Localised infection [Unknown]
  - Furuncle [Unknown]

NARRATIVE: CASE EVENT DATE: 20230101
